FAERS Safety Report 9240467 (Version 1)
Quarter: 2013Q1

REPORT INFORMATION
  Report Type: Spontaneous
  Country: US (occurrence: None)
  Receive Date: 20121120
  Receipt Date: 20121120
  Transmission Date: 20140127
  Serious: Yes (Other)
  Sender: FDA-Public Use
  Company Number: CPI 3528

PATIENT
  Age: 77 Year
  Sex: Male

DRUGS (1)
  1. KRISTALOSE [Suspect]
     Indication: CONSTIPATION

REACTIONS (1)
  - Weight increased [None]
